FAERS Safety Report 9681096 (Version 1)
Quarter: 2013Q4

REPORT INFORMATION
  Report Type: Spontaneous
  Country: GB (occurrence: GB)
  Receive Date: 20131111
  Receipt Date: 20131111
  Transmission Date: 20140711
  Serious: Yes (Life-Threatening, Hospitalization)
  Sender: FDA-Public Use
  Company Number: GB-ASTRAZENECA-2013SE81512

PATIENT
  Age: 68 Year
  Sex: Male

DRUGS (2)
  1. LIDOCAINE HYDROCHLORIDE [Suspect]
     Indication: EPICONDYLITIS
     Route: 058
     Dates: start: 20131017, end: 20131017
  2. METHYLPREDNISOLONE ACETATE [Suspect]
     Indication: EPICONDYLITIS
     Route: 058
     Dates: start: 20131017, end: 20131017

REACTIONS (5)
  - Pulseless electrical activity [Recovered/Resolved]
  - Atrial fibrillation [Recovered/Resolved]
  - Respiratory arrest [Recovered/Resolved]
  - Hypotension [Recovered/Resolved]
  - Syncope [Recovered/Resolved]
